FAERS Safety Report 7589080-2 (Version None)
Quarter: 2011Q3

REPORT INFORMATION
  Report Type: 
  Country: None (occurrence: None)
  Receive Date: 20110705
  Receipt Date: 20110628
  Transmission Date: 20111222
  Serious: Yes (Life-Threatening, Hospitalization)
  Sender: FDA-Public Use
  Company Number: ES-JNJFOC-20110612452

PATIENT
  Age: 16 Year
  Sex: Female

DRUGS (3)
  1. CIPROFLOXACIN [Concomitant]
     Indication: PRODUCT USED FOR UNKNOWN INDICATION
     Route: 065
  2. AUGMENTIN '125' [Concomitant]
     Indication: PRODUCT USED FOR UNKNOWN INDICATION
     Route: 065
  3. LEVOFLOXACIN [Suspect]
     Indication: RESPIRATORY TRACT INFECTION
     Route: 048
     Dates: start: 20110530, end: 20110530

REACTIONS (4)
  - FACE OEDEMA [None]
  - ANAPHYLACTIC SHOCK [None]
  - CONJUNCTIVAL HYPERAEMIA [None]
  - DYSPNOEA [None]
